FAERS Safety Report 6158858-4 (Version None)
Quarter: 2009Q2

REPORT INFORMATION
  Report Type: 
  Country: None (occurrence: None)
  Receive Date: 20090417
  Receipt Date: 20090414
  Transmission Date: 20091009
  Serious: Yes (Death, Hospitalization, Other)
  Sender: FDA-Public Use
  Company Number: PHHY2009BR14112

PATIENT
  Sex: Female

DRUGS (3)
  1. FORASEQ [Suspect]
     Indication: DYSPNOEA
     Dosage: UNK
     Dates: start: 20071201
  2. FORASEQ [Suspect]
     Indication: BRONCHIOLITIS
  3. ANCORON [Concomitant]
     Indication: ARRHYTHMIA
     Route: 048

REACTIONS (4)
  - CONDITION AGGRAVATED [None]
  - DYSPNOEA [None]
  - PULMONARY OEDEMA [None]
  - WEIGHT DECREASED [None]
